FAERS Safety Report 11021568 (Version 2)
Quarter: 2015Q3

REPORT INFORMATION
  Report Type: Spontaneous
  Country: NL (occurrence: NL)
  Receive Date: 20150413
  Receipt Date: 20150720
  Transmission Date: 20151125
  Serious: Yes (Other)
  Sender: FDA-Public Use
  Company Number: NL-TEVA-552751ISR

PATIENT

DRUGS (1)
  1. LEVODOPA/CARBIDOPA 250/25 PCH, TABLETTEN 250/25 MG [Suspect]
     Active Substance: CARBIDOPA\LEVODOPA

REACTIONS (2)
  - Parkinsonism [Unknown]
  - Disability [Unknown]
